FAERS Safety Report 5135527-0 (Version None)
Quarter: 2006Q4

REPORT INFORMATION
  Report Type: 
  Country: None (occurrence: None)
  Receive Date: 20061024
  Receipt Date: 20061024
  Transmission Date: 20070319
  Serious: Yes (Hospitalization)
  Sender: FDA-Public Use
  Company Number: None

PATIENT
  Age: 71 Year
  Sex: Male
  Weight: 80.2867 kg

DRUGS (5)
  1. HYDROCHLOROTHIAZIDE [Suspect]
     Indication: HYPERTENSION
     Dosage: 25 MG DAILY
     Dates: start: 20021219, end: 20060815
  2. DILTIAZEM (TIAZAC) [Concomitant]
  3. ENALAPRIL MALEATE [Concomitant]
  4. LOVASTATIN [Concomitant]
  5. HYDROCHLOROTHIAZIDE [Concomitant]

REACTIONS (1)
  - HYPOKALAEMIA [None]
